FAERS Safety Report 5390519-1 (Version None)
Quarter: 2007Q3

REPORT INFORMATION
  Report Type: 
  Country: None (occurrence: None)
  Receive Date: 20070718
  Receipt Date: 20060817
  Transmission Date: 20080115
  Serious: No
  Sender: FDA-Public Use
  Company Number: US-KINGPHARMUSA00001-K200601069

PATIENT

DRUGS (3)
  1. LEVOXYL [Suspect]
     Indication: HYPOTHYROIDISM
     Dosage: 50 MCG, QD
     Route: 048
     Dates: start: 19860101
  2. TRICOR [Concomitant]
     Dosage: 160 MG, QD
     Route: 048
  3. ACTONEL [Concomitant]
     Dosage: 70 MG, QW
     Route: 048

REACTIONS (2)
  - GLOSSODYNIA [None]
  - THROAT IRRITATION [None]
